FAERS Safety Report 6379770-1 (Version None)
Quarter: 2009Q3

REPORT INFORMATION
  Report Type: 
  Country: None (occurrence: None)
  Receive Date: 20090924
  Receipt Date: 20090924
  Transmission Date: 20100115
  Serious: Yes (Disabling)
  Sender: FDA-Public Use
  Company Number: None

PATIENT
  Age: 65 Year
  Sex: Female
  Weight: 77.1115 kg

DRUGS (2)
  1. HYALURONIDASE [Suspect]
     Indication: CATARACT OPERATION
     Dosage: 1CC 1 DOSE OPHTHALMIC
     Route: 047
     Dates: start: 20090915, end: 20090915
  2. HYALURONIDASE [Suspect]
     Indication: CORNEAL TRANSPLANT
     Dosage: 1CC 1 DOSE OPHTHALMIC
     Route: 047
     Dates: start: 20090915, end: 20090915

REACTIONS (2)
  - CELLULITIS ORBITAL [None]
  - PAROPHTHALMIA [None]
